FAERS Safety Report 10087688 (Version 2)
Quarter: 2014Q2

REPORT INFORMATION
  Report Type: Spontaneous
  Country: US (occurrence: US)
  Receive Date: 20140418
  Receipt Date: 20140418
  Transmission Date: 20141212
  Serious: No
  Sender: FDA-Public Use
  Company Number: US-PURDUE-USA-2013-0107881

PATIENT
  Sex: Male

DRUGS (4)
  1. OXYCONTIN (NDA 22-272) [Suspect]
     Indication: INTERVERTEBRAL DISC PROTRUSION
     Dosage: 40 MG, TID
     Route: 048
  2. OXYCODONE HCL IR CAPSULES [Concomitant]
     Indication: PRODUCT USED FOR UNKNOWN INDICATION
  3. INSULIN [Concomitant]
     Indication: PRODUCT USED FOR UNKNOWN INDICATION
  4. GLUCO-LYTE [Concomitant]
     Indication: PRODUCT USED FOR UNKNOWN INDICATION

REACTIONS (4)
  - Haemorrhoids [Recovered/Resolved]
  - Haematochezia [Recovered/Resolved]
  - Constipation [Recovered/Resolved]
  - Faeces hard [Recovered/Resolved]
